FAERS Safety Report 10404225 (Version 2)
Quarter: 2014Q1

REPORT INFORMATION
  Report Type: Spontaneous
  Country: US (occurrence: None)
  Receive Date: 20140128
  Receipt Date: 20140128
  Transmission Date: 20141002
  Serious: Yes (Other)
  Sender: FDA-Public Use
  Company Number: A-US2012-60599

PATIENT
  Age: 74 Year
  Sex: Female

DRUGS (2)
  1. TRACLEER (BOSENTAN) TABLET [Suspect]
     Indication: PULMONARY ARTERIAL HYPERTENSION
     Route: 048
     Dates: start: 20080331
  2. COUMADIN (WARFARIN SODIUM) [Concomitant]

REACTIONS (4)
  - Cardiac failure [None]
  - Dyspnoea [None]
  - Right ventricular systolic pressure increased [None]
  - Condition aggravated [None]
